FAERS Safety Report 4916550-5 (Version None)
Quarter: 2006Q1

REPORT INFORMATION
  Report Type: 
  Country: None (occurrence: None)
  Receive Date: 20060216
  Receipt Date: 20060216
  Transmission Date: 20060701
  Serious: Yes (Hospitalization)
  Sender: FDA-Public Use
  Company Number: None

PATIENT
  Age: 76 Year
  Sex: Male
  Weight: 72.5755 kg

DRUGS (11)
  1. ALTACE [Suspect]
     Indication: HYPERTENSION
     Dosage: 5 MG DAILY PO
     Route: 048
     Dates: end: 20050827
  2. LABETALOL HCL [Concomitant]
  3. GLIPIZIDE [Concomitant]
  4. SIMVASTATIN [Concomitant]
  5. LEVOTHYROXINE SODIUM [Concomitant]
  6. CLOPIDOGREL [Concomitant]
  7. NIFEDIPINE [Concomitant]
  8. DIATX [Concomitant]
  9. CALCIUM ACETULE [Concomitant]
  10. MAGNESIUM OXIDE [Concomitant]
  11. FILGRASTIM [Concomitant]

REACTIONS (2)
  - APLASIA [None]
  - LEUKOPENIA [None]
